FAERS Safety Report 22157940 (Version 2)
Quarter: 2023Q2

REPORT INFORMATION
  Report Type: Spontaneous
  Country: PT (occurrence: PT)
  Receive Date: 20230330
  Receipt Date: 20230502
  Transmission Date: 20230722
  Serious: Yes (Hospitalization, Other)
  Sender: FDA-Public Use
  Company Number: PT-TEVA-2023-PT-2869837

PATIENT
  Age: 72 Year
  Sex: Female

DRUGS (1)
  1. COTRIMOXAZOLE [Suspect]
     Active Substance: SULFAMETHOXAZOLE\TRIMETHOPRIM
     Indication: Cystitis
     Route: 048

REACTIONS (2)
  - Drug-induced liver injury [Recovered/Resolved]
  - Erythema nodosum [Unknown]
